FAERS Safety Report 20057839 (Version 1)
Quarter: 2021Q4

REPORT INFORMATION
  Report Type: Spontaneous
  Country: RS (occurrence: RS)
  Receive Date: 20211111
  Receipt Date: 20211111
  Transmission Date: 20220303
  Serious: Yes (Other)
  Sender: FDA-Public Use
  Company Number: RS-PFIZER INC-202101407942

PATIENT
  Age: 29 Year

DRUGS (2)
  1. LINEZOLID [Suspect]
     Active Substance: LINEZOLID
     Dosage: UNK
  2. TIGECYCLINE [Suspect]
     Active Substance: TIGECYCLINE
     Dosage: UNK

REACTIONS (3)
  - Pathogen resistance [Unknown]
  - Bacterial sepsis [Unknown]
  - Haemorrhage intracranial [Unknown]
